FAERS Safety Report 9174169 (Version 1)
Quarter: 2013Q1

REPORT INFORMATION
  Report Type: Spontaneous
  Country: IT (occurrence: None)
  Receive Date: 20130315
  Receipt Date: 20130315
  Transmission Date: 20140127
  Serious: Yes (Hospitalization)
  Sender: FDA-Public Use
  Company Number: 2013-04248

PATIENT
  Sex: Male

DRUGS (1)
  1. RAMIPRIL (UNKNOWN) (RAMIPRIL) UNK, UNKUNK [Suspect]
     Indication: PRODUCT USED FOR UNKNOWN INDICATION

REACTIONS (2)
  - Oedema peripheral [None]
  - Pruritus [None]
